FAERS Safety Report 11603551 (Version 1)
Quarter: 2015Q4

REPORT INFORMATION
  Report Type: Spontaneous
  Country: US (occurrence: None)
  Receive Date: 20151006
  Receipt Date: 20151006
  Transmission Date: 20160304
  Serious: No
  Sender: FDA-Public Use
  Company Number: None

PATIENT
  Age: 17 Year
  Sex: Male

DRUGS (1)
  1. METHOTREXATE [Suspect]
     Active Substance: METHOTREXATE
     Dosage: SQ
     Dates: start: 20150710, end: 20151002

REACTIONS (2)
  - Tooth disorder [None]
  - Gingival disorder [None]

NARRATIVE: CASE EVENT DATE: 20151002
